FAERS Safety Report 9765484 (Version 1)
Quarter: 2013Q4

REPORT INFORMATION
  Report Type: Spontaneous
  Country: US (occurrence: US)
  Receive Date: 20131217
  Receipt Date: 20131217
  Transmission Date: 20140711
  Serious: No
  Sender: FDA-Public Use
  Company Number: US-BIOGENIDEC-2013BI112598

PATIENT
  Age: 48 Year
  Sex: Female

DRUGS (20)
  1. TECFIDERA [Suspect]
     Indication: MULTIPLE SCLEROSIS
     Route: 048
     Dates: start: 20131001
  2. TECFIDERA [Suspect]
     Indication: MULTIPLE SCLEROSIS
     Route: 048
  3. ADVAIR [Concomitant]
  4. BIOTIN [Concomitant]
  5. ASPIRIN [Concomitant]
  6. METROGEL [Concomitant]
  7. DESONIDE [Concomitant]
  8. CLARITIN [Concomitant]
  9. FOLIC ACID [Concomitant]
  10. MAGNESIUM OXIDE [Concomitant]
  11. METHOTREXATE [Concomitant]
  12. NAPROSYN [Concomitant]
  13. NASONEX [Concomitant]
  14. PLAQUENIL [Concomitant]
  15. PROVENTIL [Concomitant]
  16. SULFASALAZINE [Concomitant]
  17. VITAMIN A [Concomitant]
  18. VITAMIN D [Concomitant]
  19. VITAMIN D3 [Concomitant]
  20. XOLAIR [Concomitant]

REACTIONS (3)
  - Rosacea [Unknown]
  - Seborrhoeic dermatitis [Unknown]
  - Flushing [Not Recovered/Not Resolved]
